FAERS Safety Report 6011397-3 (Version None)
Quarter: 2008Q4

REPORT INFORMATION
  Report Type: 
  Country: None (occurrence: None)
  Receive Date: 20081218
  Receipt Date: 19980528
  Transmission Date: 20090506
  Serious: Yes (Death, Hospitalization)
  Sender: FDA-Public Use
  Company Number: US-ROCHE-100105

PATIENT
  Age: 65 Year
  Sex: Female

DRUGS (9)
  1. ROMAZICON [Suspect]
     Indication: DRUG USE FOR UNKNOWN INDICATION
     Route: 065
  2. VERSED [Suspect]
     Indication: DRUG USE FOR UNKNOWN INDICATION
     Route: 065
  3. PERCOCET [Concomitant]
     Route: 048
  4. MORPHINE [Concomitant]
  5. PREMARIN [Concomitant]
  6. ZOLOFT [Concomitant]
  7. HALDOL [Concomitant]
  8. MULTIPLE VITAMIN [Concomitant]
  9. BENADRYL [Concomitant]

REACTIONS (2)
  - DEATH [None]
  - LETHARGY [None]
